FAERS Safety Report 5181236-1 (Version None)
Quarter: 2006Q4

REPORT INFORMATION
  Report Type: 
  Country: None (occurrence: None)
  Receive Date: 20061220
  Receipt Date: 20051115
  Transmission Date: 20070319
  Serious: No
  Sender: FDA-Public Use
  Company Number: US-GLAXOSMITHKLINE-A0582301A

PATIENT
  Age: 49 Year

DRUGS (1)
  1. COMMIT [Suspect]
     Dates: start: 20051114, end: 20051114

REACTIONS (3)
  - HYPOAESTHESIA ORAL [None]
  - PHARYNGEAL HYPOAESTHESIA [None]
  - THROAT TIGHTNESS [None]
